FAERS Safety Report 24336855 (Version 1)
Quarter: 2024Q3

REPORT INFORMATION
  Report Type: Spontaneous
  Country: US (occurrence: US)
  Receive Date: 20240919
  Receipt Date: 20240919
  Transmission Date: 20241016
  Serious: Yes (Other)
  Sender: HIKMA
  Company Number: US-MLMSERVICE-20240508-PI052533-00271-1

PATIENT

DRUGS (27)
  1. ASPARAGINASE [Suspect]
     Active Substance: ASPARAGINASE
     Indication: Teratoma
     Dosage: 2500 UNITS/M2 IV DAY 4, 1 CYCLE (28-DAY CYCLE)
     Route: 042
  2. ASPARAGINASE [Suspect]
     Active Substance: ASPARAGINASE
     Indication: Germ cell neoplasm
  3. ASPARAGINASE [Suspect]
     Active Substance: ASPARAGINASE
     Indication: KMT2A gene mutation
  4. ASPARAGINASE [Suspect]
     Active Substance: ASPARAGINASE
     Indication: B-cell type acute leukaemia
  5. CYTARABINE [Suspect]
     Active Substance: CYTARABINE
     Indication: B-cell type acute leukaemia
     Dosage: 1 GRAM PER SQUARE METRE, SINGLE
     Route: 042
  6. CYTARABINE [Suspect]
     Active Substance: CYTARABINE
     Indication: KMT2A gene mutation
  7. DAUNORUBICIN [Suspect]
     Active Substance: DAUNORUBICIN
     Indication: KMT2A gene mutation
     Dosage: 25 MILLIGRAM/SQ. METER, WEEKLY,  1 CYCLE (28-DAY CYCLE)
     Route: 042
  8. DAUNORUBICIN [Suspect]
     Active Substance: DAUNORUBICIN
     Indication: Teratoma
  9. DAUNORUBICIN [Suspect]
     Active Substance: DAUNORUBICIN
     Indication: Germ cell neoplasm
  10. DAUNORUBICIN [Suspect]
     Active Substance: DAUNORUBICIN
     Indication: B-cell type acute leukaemia
  11. DEXAMETHASONE [Suspect]
     Active Substance: DEXAMETHASONE
     Indication: B-cell type acute leukaemia
     Dosage: 40 MILLIGRAM, SINGLE
     Route: 042
  12. DEXAMETHASONE [Suspect]
     Active Substance: DEXAMETHASONE
     Indication: KMT2A gene mutation
     Dosage: 5 MILLIGRAM/SQ. METER, Q12H
     Route: 042
  13. HYDROXYUREA [Suspect]
     Active Substance: HYDROXYUREA
     Indication: B-cell type acute leukaemia
     Dosage: 25 MILLIGRAM/KILOGRAM, Q12H
     Route: 048
  14. HYDROXYUREA [Suspect]
     Active Substance: HYDROXYUREA
     Indication: KMT2A gene mutation
  15. METHOTREXATE [Suspect]
     Active Substance: METHOTREXATE
     Indication: Prophylaxis
     Dosage: 15 MILLIGRAM, EVERY 2?4 WEEKS, THROUGHOUT INDUCTION AND CONSOLIDATION
     Route: 037
  16. PALBOCICLIB [Suspect]
     Active Substance: PALBOCICLIB
     Indication: KMT2A gene mutation
     Dosage: 2100 MILLIGRAM, 100 MG PO DAYS 1?21 1 CYCLE (28-DAY CYCLE
     Route: 048
  17. PALBOCICLIB [Suspect]
     Active Substance: PALBOCICLIB
     Indication: Teratoma
  18. PALBOCICLIB [Suspect]
     Active Substance: PALBOCICLIB
     Indication: Germ cell neoplasm
  19. PALBOCICLIB [Suspect]
     Active Substance: PALBOCICLIB
     Indication: B-cell type acute leukaemia
  20. PREDNISONE [Suspect]
     Active Substance: PREDNISONE
     Indication: B-cell type acute leukaemia
     Dosage: 30 MILLIGRAM/SQ. METER,1 CYCLE (28-DAY CYCLE)
     Route: 048
  21. PREDNISONE [Suspect]
     Active Substance: PREDNISONE
     Indication: Teratoma
  22. PREDNISONE [Suspect]
     Active Substance: PREDNISONE
     Indication: Germ cell neoplasm
  23. PREDNISONE [Suspect]
     Active Substance: PREDNISONE
     Indication: KMT2A gene mutation
  24. VINCRISTINE [Suspect]
     Active Substance: VINCRISTINE
     Indication: Germ cell neoplasm
     Dosage: 2 MILLIGRAM, WEEKLY,  1 CYCLE (28-DAY CYCLE)
     Route: 042
  25. VINCRISTINE [Suspect]
     Active Substance: VINCRISTINE
     Indication: Teratoma
  26. VINCRISTINE [Suspect]
     Active Substance: VINCRISTINE
     Indication: KMT2A gene mutation
  27. VINCRISTINE [Suspect]
     Active Substance: VINCRISTINE
     Indication: B-cell type acute leukaemia

REACTIONS (5)
  - Thrombocytopenia [Unknown]
  - Neutropenia [Unknown]
  - Constipation [Unknown]
  - Vomiting [Unknown]
  - Nausea [Unknown]
